FAERS Safety Report 12536249 (Version 7)
Quarter: 2016Q3

REPORT INFORMATION
  Report Type: Spontaneous
  Country: GB (occurrence: GB)
  Receive Date: 20160707
  Receipt Date: 20160921
  Transmission Date: 20161109
  Serious: Yes (Other)
  Sender: FDA-Public Use
  Company Number: GB-TEVA-672071ACC

PATIENT
  Age: 41 Year
  Sex: Female

DRUGS (17)
  1. PREDNISOLONE. [Suspect]
     Active Substance: PREDNISOLONE
     Indication: ASTHMA
     Route: 065
  2. SEROXAT [Suspect]
     Active Substance: PAROXETINE HYDROCHLORIDE
     Dosage: 30 MG, U
     Route: 065
  3. PAROXETINE. [Suspect]
     Active Substance: PAROXETINE
     Dosage: 20 MILLIGRAM DAILY;
     Route: 065
     Dates: start: 20001127, end: 20010608
  4. PARNATE [Suspect]
     Active Substance: TRANYLCYPROMINE SULFATE
     Indication: PRODUCT USED FOR UNKNOWN INDICATION
     Route: 065
  5. PROCHLORPERAZINE? [Concomitant]
     Indication: PRODUCT USED FOR UNKNOWN INDICATION
  6. PAROXETINE. [Suspect]
     Active Substance: PAROXETINE
     Route: 005
     Dates: start: 20001127, end: 20010608
  7. PAROXETINE. [Suspect]
     Active Substance: PAROXETINE
     Dosage: 30 MILLIGRAM DAILY;
     Route: 065
     Dates: start: 20001127, end: 20010608
  8. PAROXETINE. [Suspect]
     Active Substance: PAROXETINE
     Dosage: 20 MILLIGRAM DAILY;
     Route: 065
     Dates: start: 20001127, end: 20010608
  9. PAXIL [Suspect]
     Active Substance: PAROXETINE HYDROCHLORIDE
     Indication: DEPRESSION
     Route: 065
  10. PAROXETINE. [Suspect]
     Active Substance: PAROXETINE
     Indication: DEPRESSION
     Dosage: 30 MILLIGRAM DAILY;
     Route: 065
     Dates: start: 20010126, end: 20010608
  11. PAROXETINE. [Suspect]
     Active Substance: PAROXETINE
     Dosage: 30 MILLIGRAM DAILY;
     Route: 065
  12. PAROXETINE. [Suspect]
     Active Substance: PAROXETINE
     Dosage: 20 MILLIGRAM DAILY;
     Route: 065
     Dates: start: 20001127, end: 20010608
  13. ORAPRED [Suspect]
     Active Substance: PREDNISOLONE SODIUM PHOSPHATE
     Indication: ASTHMA
     Route: 065
  14. PAROXETINE. [Suspect]
     Active Substance: PAROXETINE
     Route: 065
  15. PAXIL [Suspect]
     Active Substance: PAROXETINE HYDROCHLORIDE
     Dates: end: 20010608
  16. PAROXETINE. [Suspect]
     Active Substance: PAROXETINE
     Route: 065
  17. SEROXAT [Suspect]
     Active Substance: PAROXETINE HYDROCHLORIDE
     Indication: DEPRESSION
     Route: 065
     Dates: start: 20001127, end: 20010608

REACTIONS (20)
  - Dyssomnia [Unknown]
  - Mood swings [Unknown]
  - Drug withdrawal syndrome [Unknown]
  - Hyperhidrosis [Recovered/Resolved]
  - Paraesthesia [Unknown]
  - Hypoaesthesia [Unknown]
  - Feeling cold [Unknown]
  - Headache [Recovered/Resolved]
  - Obsessive-compulsive disorder [Unknown]
  - Weight increased [Unknown]
  - Hot flush [Unknown]
  - Paraesthesia [Recovered/Resolved]
  - Condition aggravated [Unknown]
  - Anger [Unknown]
  - Vomiting [Recovered/Resolved]
  - Nausea [Recovered/Resolved]
  - Suicidal ideation [Unknown]
  - Muscle spasms [Unknown]
  - Anxiety [Unknown]
  - Dizziness [Recovered/Resolved]

NARRATIVE: CASE EVENT DATE: 200104
